FAERS Safety Report 6365590-0 (Version None)
Quarter: 2009Q3

REPORT INFORMATION
  Report Type: 
  Country: None (occurrence: None)
  Receive Date: 20090919
  Receipt Date: 20090818
  Transmission Date: 20100115
  Serious: Yes (Hospitalization)
  Sender: FDA-Public Use
  Company Number: US-ABBOTT-09P-163-0592186-00

PATIENT
  Sex: Female

DRUGS (2)
  1. HUMIRA [Suspect]
     Indication: CROHN'S DISEASE
     Dosage: INITIAL HIGH DOSE ONCE
     Route: 058
     Dates: start: 20090413
  2. HUMIRA [Suspect]
     Route: 058

REACTIONS (1)
  - CROHN'S DISEASE [None]
